FAERS Safety Report 6292346-X (Version None)
Quarter: 2009Q3

REPORT INFORMATION
  Report Type: 
  Country: None (occurrence: None)
  Receive Date: 20090731
  Receipt Date: 20090710
  Transmission Date: 20100115
  Serious: No
  Sender: FDA-Public Use
  Company Number: US-BAYER-200925498NA

PATIENT
  Sex: Male

DRUGS (3)
  1. LEVITRA [Suspect]
     Indication: DRUG USE FOR UNKNOWN INDICATION
     Dates: start: 20040101
  2. LEVITRA [Suspect]
     Dates: start: 20090401
  3. LEVITRA [Suspect]
     Dosage: SAMPLE
     Dates: start: 20090101

REACTIONS (1)
  - ADVERSE EVENT [None]
